FAERS Safety Report 17752942 (Version 2)
Quarter: 2020Q3

REPORT INFORMATION
  Report Type: Spontaneous
  Country: US (occurrence: US)
  Receive Date: 20200506
  Receipt Date: 20200721
  Transmission Date: 20201102
  Serious: Yes (Hospitalization, Other)
  Sender: FDA-Public Use
  Company Number: US-PURDUE PHARMA-USA-2020-0152480

PATIENT
  Sex: Male

DRUGS (6)
  1. VICODIN [Suspect]
     Active Substance: ACETAMINOPHEN\HYDROCODONE BITARTRATE
     Indication: BACK PAIN
     Dosage: UNK
     Route: 065
  2. OXYCONTIN [Suspect]
     Active Substance: OXYCODONE HYDROCHLORIDE
     Indication: BACK PAIN
     Dosage: 80 MG, QID
     Route: 048
     Dates: end: 2014
  3. ROXICODONE [Suspect]
     Active Substance: OXYCODONE HYDROCHLORIDE
     Indication: PAIN
     Dosage: 40 MG,14 TIMES DAILY
     Route: 048
     Dates: end: 2014
  4. OXYCODONE HYDROCHLORIDE (SIMILAR TO NDA 22?272) [Suspect]
     Active Substance: OXYCODONE HYDROCHLORIDE
     Indication: BACK PAIN
     Dosage: UNK
     Route: 048
  5. AMBIEN [Suspect]
     Active Substance: ZOLPIDEM TARTRATE
     Indication: INSOMNIA
     Dosage: 1 TABLET, PRN
     Route: 048
  6. VALIUM [Suspect]
     Active Substance: DIAZEPAM
     Indication: ANXIETY
     Dosage: 10 MG, Q4H
     Route: 048
     Dates: end: 2014

REACTIONS (19)
  - Anger [Unknown]
  - Drug dependence [Unknown]
  - Drug detoxification [Recovered/Resolved]
  - Seizure [Unknown]
  - Constipation [Unknown]
  - Renal disorder [Unknown]
  - Skin laceration [Unknown]
  - Abdominal pain upper [Unknown]
  - Prostatic disorder [Unknown]
  - Off label use [Recovered/Resolved]
  - Respiratory disorder [Unknown]
  - Rib fracture [Unknown]
  - Amnesia [Unknown]
  - Diaphragmatic injury [Unknown]
  - Cardiac disorder [Unknown]
  - Hypoaesthesia [Unknown]
  - Fall [Recovered/Resolved]
  - Hallucination [Unknown]
  - Sleep apnoea syndrome [Unknown]
